FAERS Safety Report 21194131 (Version 2)
Quarter: 2022Q3

REPORT INFORMATION
  Report Type: Spontaneous
  Country: JP (occurrence: JP)
  Receive Date: 20220810
  Receipt Date: 20220916
  Transmission Date: 20221027
  Serious: Yes (Other)
  Sender: FDA-Public Use
  Company Number: JP-GLAXOSMITHKLINE-JP2022JPN113948

PATIENT
  Age: 18 Year
  Sex: Female

DRUGS (6)
  1. AMBRISENTAN [Suspect]
     Active Substance: AMBRISENTAN
     Indication: Pulmonary arterial hypertension
     Dosage: UNK
     Route: 065
  2. FLOLAN [Suspect]
     Active Substance: EPOPROSTENOL SODIUM
     Indication: Pulmonary arterial hypertension
     Dosage: UNK
     Route: 065
  3. FLOLAN [Suspect]
     Active Substance: EPOPROSTENOL SODIUM
     Dosage: 83NG/KG/MIN
     Route: 065
  4. FLOLAN [Suspect]
     Active Substance: EPOPROSTENOL SODIUM
     Dosage: DECREASED BY 10%/DAY
     Route: 065
  5. TREPROSTINIL [Suspect]
     Active Substance: TREPROSTINIL
     Indication: Product used for unknown indication
     Dosage: INCREASED ON A BASIS OF 10-15%/DAY OF 112 NG/KG/MIN
     Route: 065
  6. TADALAFIL [Concomitant]
     Active Substance: TADALAFIL

REACTIONS (4)
  - Haemorrhagic diathesis [Recovered/Resolved]
  - Platelet count decreased [Recovering/Resolving]
  - Pain in extremity [Recovered/Resolved]
  - Product use issue [Unknown]
